FAERS Safety Report 10673114 (Version 2)
Quarter: 2016Q2

REPORT INFORMATION
  Report Type: Report from Study
  Country: FR (occurrence: FR)
  Receive Date: 20141224
  Receipt Date: 20160418
  Transmission Date: 20160815
  Serious: Yes (Hospitalization, Other)
  Sender: FDA-Public Use
  Company Number: FR-ROCHE-1509048

PATIENT

DRUGS (1)
  1. RITUXIMAB [Suspect]
     Active Substance: RITUXIMAB
     Indication: IMMUNE THROMBOCYTOPENIC PURPURA
     Dosage: FOR 4 WEEKS
     Route: 042

REACTIONS (8)
  - Herpes virus infection [Unknown]
  - Pneumonia [Unknown]
  - Colorectal cancer [Unknown]
  - Hodgkin^s disease [Unknown]
  - Plasma cell myeloma [Unknown]
  - Diffuse large B-cell lymphoma [Unknown]
  - Systemic lupus erythematosus [Unknown]
  - Guillain-Barre syndrome [Unknown]
